FAERS Safety Report 21509718 (Version 2)
Quarter: 2023Q2

REPORT INFORMATION
  Report Type: Report from Study
  Country: US (occurrence: US)
  Receive Date: 20221026
  Receipt Date: 20230515
  Transmission Date: 20230722
  Serious: No
  Sender: FDA-Public Use
  Company Number: US-ABBVIE-4167183

PATIENT
  Age: 79 Year
  Sex: Female

DRUGS (2)
  1. IMBRUVICA [Suspect]
     Active Substance: IBRUTINIB
     Indication: Lymphocytic leukaemia
     Dosage: TIME INTERVAL: 0.33333333 DAYS: FORM STRENGTH: 140 MG
     Route: 048
     Dates: start: 20190927
  2. IMBRUVICA [Suspect]
     Active Substance: IBRUTINIB
     Indication: Lymphocytic leukaemia
     Dosage: FORM STRENGTH: 140 MG
     Route: 048
     Dates: start: 20190503, end: 20190927

REACTIONS (5)
  - Onychoclasis [Unknown]
  - Dysphagia [Unknown]
  - Blood bilirubin increased [Unknown]
  - Pain [Unknown]
  - Computerised tomogram abnormal [Unknown]

NARRATIVE: CASE EVENT DATE: 20220801
